FAERS Safety Report 5734179-6 (Version None)
Quarter: 2008Q2

REPORT INFORMATION
  Report Type: 
  Country: None (occurrence: None)
  Receive Date: 20080510
  Receipt Date: 20080502
  Transmission Date: 20081010
  Serious: Yes (Other)
  Sender: FDA-Public Use
  Company Number: PHBS2008IE03056

PATIENT
  Age: 58 Year
  Sex: Female
  Weight: 74 kg

DRUGS (8)
  1. ZOMETA [Suspect]
     Indication: BREAST CANCER METASTATIC
  2. SEVREDOL [Concomitant]
     Indication: PAIN
     Dosage: 10 MG, PRN
     Route: 048
  3. MST [Concomitant]
     Indication: PAIN
     Dosage: 5 MG, BID
     Route: 048
  4. DIFENE [Concomitant]
     Indication: PAIN
     Dosage: 50 MG, TID
     Route: 048
  5. NEXIUM [Concomitant]
     Indication: PROPHYLAXIS
     Dosage: 40 MG, UNK
     Route: 048
  6. ELTROXIN [Concomitant]
     Indication: HYPOTHYROIDISM
     Dosage: 100 MG, UNK
     Route: 048
  7. LASIX [Concomitant]
     Indication: DIURETIC THERAPY
     Dosage: 20 MG, UNK
     Route: 048
  8. CARDICOR [Concomitant]
     Indication: HYPERTENSION
     Dosage: 2.5 MG, UNK
     Route: 048

REACTIONS (1)
  - OSTEONECROSIS [None]
